FAERS Safety Report 13185026 (Version 1)
Quarter: 2017Q1

REPORT INFORMATION
  Report Type: Spontaneous
  Country: US (occurrence: US)
  Receive Date: 20170203
  Receipt Date: 20170203
  Transmission Date: 20170428
  Serious: Yes (Hospitalization, Other)
  Sender: FDA-Public Use
  Company Number: US-BRISTOL-MYERS SQUIBB COMPANY-BMS-2017-006872

PATIENT
  Sex: Female
  Weight: 61.22 kg

DRUGS (2)
  1. ORENCIA [Suspect]
     Active Substance: ABATACEPT
     Indication: RHEUMATOID ARTHRITIS
     Route: 058
  2. METHYLPREDNISOLONE. [Concomitant]
     Active Substance: METHYLPREDNISOLONE
     Indication: PRODUCT USED FOR UNKNOWN INDICATION
     Dosage: 6 MG, QD
     Route: 065

REACTIONS (9)
  - Infection [Unknown]
  - Pyrexia [Unknown]
  - Weight decreased [Unknown]
  - Ear infection [Unknown]
  - Vomiting [Unknown]
  - Tooth extraction [Unknown]
  - Feeling abnormal [Unknown]
  - Pyelonephritis acute [Unknown]
  - Cyst removal [Unknown]
